FAERS Safety Report 11996319 (Version 1)
Quarter: 2016Q1

REPORT INFORMATION
  Report Type: Spontaneous
  Country: CA (occurrence: CA)
  Receive Date: 20160203
  Receipt Date: 20160203
  Transmission Date: 20160526
  Serious: Yes (Other)
  Sender: FDA-Public Use
  Company Number: CA-TEVA-631444ACC

PATIENT
  Age: 27 Year
  Sex: Female

DRUGS (1)
  1. NOVO-LEVOFLOXACIN [Suspect]
     Active Substance: LEVOFLOXACIN
     Indication: PNEUMONIA
     Dosage: 500 MILLIGRAM DAILY;
     Route: 048

REACTIONS (8)
  - Chest discomfort [Unknown]
  - Insomnia [Unknown]
  - Headache [Unknown]
  - Dysphagia [Unknown]
  - Confusional state [Unknown]
  - Fatigue [Unknown]
  - Hypoaesthesia [Unknown]
  - Memory impairment [Unknown]
